FAERS Safety Report 7841716-4 (Version None)
Quarter: 2011Q4

REPORT INFORMATION
  Report Type: 
  Country: None (occurrence: None)
  Receive Date: 20111025
  Receipt Date: 20111014
  Transmission Date: 20120403
  Serious: Yes (Other)
  Sender: FDA-Public Use
  Company Number: CA-JNJFOC-20111007913

PATIENT
  Sex: Female
  Weight: 61.8 kg

DRUGS (9)
  1. HYDROCORTISONE [Concomitant]
     Indication: PREMEDICATION
     Route: 042
  2. REMICADE [Suspect]
     Indication: CROHN'S DISEASE
     Dosage: DOSE FREQUENCY WAS ONCE IN 6-7 WEEKS
     Route: 042
     Dates: start: 20060101
  3. NEXIUM [Concomitant]
     Route: 065
  4. BENADRYL [Concomitant]
     Indication: PREMEDICATION
     Route: 042
  5. MULTI-VITAMINS [Concomitant]
     Route: 065
  6. FISH OIL [Concomitant]
     Route: 065
  7. CALCIUM CARBONATE [Concomitant]
     Route: 065
  8. DESOGESTREL AND ETHINYL ESTRADIOL [Concomitant]
     Route: 065
  9. FOLIC ACID [Concomitant]
     Route: 065

REACTIONS (4)
  - ABDOMINAL DISTENSION [None]
  - ABDOMINAL PAIN [None]
  - RECTAL HAEMORRHAGE [None]
  - ABDOMINAL DISCOMFORT [None]
